FAERS Safety Report 5909665-6 (Version None)
Quarter: 2008Q4

REPORT INFORMATION
  Report Type: 
  Country: None (occurrence: None)
  Receive Date: 20081007
  Receipt Date: 20080926
  Transmission Date: 20090506
  Serious: Yes (Hospitalization)
  Sender: FDA-Public Use
  Company Number: PHHY2008FR22821

PATIENT
  Sex: Male

DRUGS (1)
  1. ACLASTA [Suspect]

REACTIONS (2)
  - DELIRIUM [None]
  - PYREXIA [None]
